FAERS Safety Report 7958868-8 (Version None)
Quarter: 2011Q4

REPORT INFORMATION
  Report Type: 
  Country: None (occurrence: None)
  Receive Date: 20111206
  Receipt Date: 20111128
  Transmission Date: 20120403
  Serious: Yes (Other)
  Sender: FDA-Public Use
  Company Number: US-UCBSA-046697

PATIENT

DRUGS (1)
  1. VIMPAT [Suspect]
     Indication: EPILEPSY

REACTIONS (7)
  - SUICIDAL IDEATION [None]
  - CONVULSION [None]
  - DYSPHEMIA [None]
  - CONFUSIONAL STATE [None]
  - ADVERSE DRUG REACTION [None]
  - BIPOLAR DISORDER [None]
  - UNEVALUABLE EVENT [None]
